FAERS Safety Report 6336162-9 (Version None)
Quarter: 2009Q3

REPORT INFORMATION
  Report Type: 
  Country: None (occurrence: None)
  Receive Date: 20090826
  Receipt Date: 20090818
  Transmission Date: 20100115
  Serious: Yes (Other)
  Sender: FDA-Public Use
  Company Number: ADR14472009

PATIENT
  Age: 84 Year
  Sex: Male

DRUGS (1)
  1. CITALOPRAM HYDROBROMIDE [Suspect]
     Indication: DEPRESSED MOOD
     Dosage: 10MG, ORAL
     Route: 048
     Dates: start: 20080616, end: 20080623

REACTIONS (3)
  - BLOOD SODIUM ABNORMAL [None]
  - CONFUSIONAL STATE [None]
  - FALL [None]
